FAERS Safety Report 15093092 (Version 2)
Quarter: 2018Q3

REPORT INFORMATION
  Report Type: Spontaneous
  Country: DE (occurrence: DE)
  Receive Date: 20180629
  Receipt Date: 20180705
  Transmission Date: 20181010
  Serious: Yes (Life-Threatening, Hospitalization, Disabling, Other)
  Sender: FDA-Public Use
  Company Number: DE-TORRENT-00008700

PATIENT
  Age: 53 Year
  Sex: Female

DRUGS (14)
  1. TIZANIDIN [Suspect]
     Active Substance: TIZANIDINE HYDROCHLORIDE
     Indication: MULTIPLE SCLEROSIS
     Dosage: 2 MG 1?1?1
     Route: 048
     Dates: start: 201706
  2. CALCIUM + VITAMIN D [Concomitant]
     Active Substance: CALCIUM\VITAMIN D
     Indication: PRODUCT USED FOR UNKNOWN INDICATION
     Dosage: DAILY DOSE: 1 DF DOSAGE FORM EVERY DAYS
     Dates: start: 201506
  3. AMITRIPTYLIN [Suspect]
     Active Substance: AMITRIPTYLINE
     Indication: PRODUCT USED FOR UNKNOWN INDICATION
     Dosage: UNKNOWN
     Route: 048
     Dates: start: 201711, end: 201712
  4. TERIFLUNOMIDE [Suspect]
     Active Substance: TERIFLUNOMIDE
     Indication: MULTIPLE SCLEROSIS
     Dosage: UNKNOWN
     Route: 048
     Dates: start: 201506
  5. CLEXANE [Concomitant]
     Active Substance: ENOXAPARIN SODIUM
     Indication: PRODUCT USED FOR UNKNOWN INDICATION
     Dosage: DAILY DOSE: 40 MG MILLGRAM(S) EVERY DAYS
     Dates: start: 201709
  6. TROSPIUM CHLORID [Concomitant]
     Indication: PRODUCT USED FOR UNKNOWN INDICATION
     Dosage: DAILY DOSE: 30 MG MILLGRAM(S) EVERY DAYS; 1?0?1
     Dates: start: 201701
  7. AMITRIPTYLIN [Concomitant]
     Active Substance: AMITRIPTYLINE
     Indication: PRODUCT USED FOR UNKNOWN INDICATION
     Dosage: 0?0?0?1
     Dates: start: 201711
  8. VENLAFAXIN [Suspect]
     Active Substance: VENLAFAXINE HYDROCHLORIDE
     Indication: PRODUCT USED FOR UNKNOWN INDICATION
     Dosage: UNKNOWN
     Route: 048
     Dates: start: 201711, end: 201712
  9. BACLOFEN. [Concomitant]
     Active Substance: BACLOFEN
     Indication: PRODUCT USED FOR UNKNOWN INDICATION
     Dosage: DAILY DOSE: 60 MG MILLGRAM(S) EVERY DAYS
     Dates: start: 201612
  10. GABAPENTIN. [Concomitant]
     Active Substance: GABAPENTIN
     Indication: PRODUCT USED FOR UNKNOWN INDICATION
     Dosage: DAILY DOSE: 1800 MG MILLGRAM(S) EVERY DAYS; 1?1?1
     Dates: start: 201704
  11. MAGNESIUM BRAUSE [Concomitant]
     Indication: PRODUCT USED FOR UNKNOWN INDICATION
     Dosage: UNKNOWN
  12. FAMPRIDIN [Concomitant]
     Indication: PRODUCT USED FOR UNKNOWN INDICATION
     Dosage: UNKNOWN
     Dates: end: 201711
  13. PANTOPRAZOL [Concomitant]
     Active Substance: PANTOPRAZOLE SODIUM
     Indication: PRODUCT USED FOR UNKNOWN INDICATION
     Dosage: DAILY DOSE: 40 MG MILLGRAM(S) EVERY DAYS
  14. TILIDIN 50/4 MG [Concomitant]
     Indication: PRODUCT USED FOR UNKNOWN INDICATION
     Dosage: DAILY DOSE: 3 DF DOSAGE FORM EVERY DAYS;  1?1?1
     Dates: start: 201711, end: 201711

REACTIONS (2)
  - Hepatic failure [Recovered/Resolved with Sequelae]
  - Drug-induced liver injury [Unknown]

NARRATIVE: CASE EVENT DATE: 20180101
